FAERS Safety Report 11237910 (Version 1)
Quarter: 2015Q3

REPORT INFORMATION
  Report Type: Spontaneous
  Country: IT (occurrence: IT)
  Receive Date: 20150703
  Receipt Date: 20150703
  Transmission Date: 20151125
  Serious: Yes (Other)
  Sender: FDA-Public Use
  Company Number: PHHY2015IT076564

PATIENT
  Sex: Female
  Weight: 68 kg

DRUGS (3)
  1. ZARZIO [Suspect]
     Active Substance: FILGRASTIM
     Indication: COLONY STIMULATING FACTOR PROPHYLAXIS
     Dosage: 30 U, QD
     Route: 058
     Dates: start: 20150528, end: 20150601
  2. ENDOXAN [Concomitant]
     Active Substance: CYCLOPHOSPHAMIDE
     Indication: BREAST CANCER
     Dosage: 1074 MG, UNK
     Route: 042
     Dates: start: 20150528, end: 20150528
  3. DOXORUBICINA ACCORD [Concomitant]
     Indication: BREAST CANCER
     Dosage: 107 MG, UNK
     Route: 042
     Dates: start: 20150528, end: 20150528

REACTIONS (2)
  - Bone pain [Recovered/Resolved]
  - Neutropenia [Recovered/Resolved]

NARRATIVE: CASE EVENT DATE: 20150529
